FAERS Safety Report 9937313 (Version 2)
Quarter: 2014Q1

REPORT INFORMATION
  Report Type: Spontaneous
  Country: US (occurrence: US)
  Receive Date: 20140302
  Receipt Date: 20140302
  Transmission Date: 20141002
  Serious: Yes (Death)
  Sender: FDA-Public Use
  Company Number: US-GE HEALTHCARE MEDICAL DIAGNOSTICS-OSCN-PR-1006S-0139

PATIENT
  Age: 79 Year
  Sex: Female

DRUGS (6)
  1. OMNISCAN [Suspect]
     Indication: BLOOD CREATININE INCREASED
     Route: 042
     Dates: start: 20060112, end: 20060112
  2. OMNISCAN [Suspect]
     Indication: POST TRANSPLANT LYMPHOPROLIFERATIVE DISORDER
     Route: 042
     Dates: start: 20060117, end: 20060117
  3. OMNISCAN [Suspect]
     Indication: PRODUCT USED FOR UNKNOWN INDICATION
     Route: 042
     Dates: start: 20060201, end: 20060201
  4. OMNISCAN [Suspect]
     Indication: SCOLIOSIS
     Route: 042
     Dates: start: 20060802, end: 20060802
  5. MAGNEVIST [Suspect]
     Indication: PRODUCT USED FOR UNKNOWN INDICATION
     Dates: start: 20060112, end: 20060112
  6. MAGNEVIST [Suspect]
     Indication: PRODUCT USED FOR UNKNOWN INDICATION
     Dates: start: 20060117, end: 20060117

REACTIONS (1)
  - Nephrogenic systemic fibrosis [Fatal]
